FAERS Safety Report 9175780 (Version 1)
Quarter: 2013Q1

REPORT INFORMATION
  Report Type: Report from Study
  Country: GB (occurrence: GB)
  Receive Date: 20130320
  Receipt Date: 20130320
  Transmission Date: 20140127
  Serious: Yes (Hospitalization)
  Sender: FDA-Public Use
  Company Number: GB-ROCHE-1203903

PATIENT
  Sex: Female

DRUGS (3)
  1. RITUXIMAB [Suspect]
     Indication: RHEUMATOID ARTHRITIS
     Route: 065
     Dates: start: 20100609
  2. HYDROXYCHLOROQUINE [Concomitant]
     Route: 065
     Dates: start: 20110204
  3. METHOTREXATE [Concomitant]
     Route: 065
     Dates: start: 20050215

REACTIONS (2)
  - Confusional state [Unknown]
  - Urinary tract infection [Unknown]
